FAERS Safety Report 6332700-0 (Version None)
Quarter: 2009Q3

REPORT INFORMATION
  Report Type: 
  Country: None (occurrence: None)
  Receive Date: 20090828
  Receipt Date: 20090825
  Transmission Date: 20100115
  Serious: No
  Sender: FDA-Public Use
  Company Number: US-B.I. PHARMACEUTICALS,INC./RIDGEFIELD-2009-BP-10068BP

PATIENT
  Age: 70 Year
  Sex: Male

DRUGS (4)
  1. FLOMAX [Suspect]
     Indication: BENIGN PROSTATIC HYPERPLASIA
     Dosage: 0.4 MG
     Route: 048
     Dates: start: 20090301, end: 20090801
  2. FLOMAX [Suspect]
     Dosage: 0.8 MG
     Route: 048
     Dates: start: 20090801
  3. LIPITOR [Concomitant]
     Indication: BLOOD CHOLESTEROL
     Dates: start: 20010101
  4. TOPROL-XL [Concomitant]
     Indication: HYPERTENSION
     Dates: start: 20010101

REACTIONS (3)
  - DRUG EFFECT DECREASED [None]
  - STOMATITIS [None]
  - URINE OUTPUT DECREASED [None]
